FAERS Safety Report 23063691 (Version 2)
Quarter: 2023Q4

REPORT INFORMATION
  Report Type: Spontaneous
  Country: JP (occurrence: None)
  Receive Date: 20231013
  Receipt Date: 20231103
  Transmission Date: 20240110
  Serious: Yes (Other)
  Sender: FDA-Public Use
  Company Number: 2023A227870

PATIENT
  Age: 72 Year
  Sex: Male

DRUGS (2)
  1. ONDEXXYA [Suspect]
     Active Substance: ANDEXANET ALFA
     Indication: Thalamus haemorrhage
     Dosage: 880.0MG UNKNOWN
     Route: 042
  2. ONDEXXYA [Suspect]
     Active Substance: ANDEXANET ALFA
     Indication: Cerebral ventricular rupture
     Dosage: 880.0MG UNKNOWN
     Route: 042

REACTIONS (2)
  - Thrombosis [Unknown]
  - Hydrocephalus [Not Recovered/Not Resolved]
